FAERS Safety Report 5999994-2 (Version None)
Quarter: 2008Q4

REPORT INFORMATION
  Report Type: 
  Country: None (occurrence: None)
  Receive Date: 20081211
  Receipt Date: 20081128
  Transmission Date: 20090506
  Serious: Yes (Other)
  Sender: FDA-Public Use
  Company Number: 2008US002669

PATIENT
  Age: 7 Day
  Sex: Female
  Weight: 0.7 kg

DRUGS (4)
  1. AMBISOME [Suspect]
     Indication: SYSTEMIC CANDIDA
     Dosage: 26.4 MG/KG, IV NOS
     Route: 042
     Dates: start: 20081002
  2. VANCOMYCIN [Concomitant]
  3. GENTAMICIN SULFATE [Concomitant]
  4. BENZYLPENICILLIN (BENZYLPENICILLIN) [Concomitant]

REACTIONS (2)
  - MEDICATION ERROR [None]
  - OVERDOSE [None]
